FAERS Safety Report 21171500 (Version 2)
Quarter: 2022Q3

REPORT INFORMATION
  Report Type: Spontaneous
  Country: CA (occurrence: CA)
  Receive Date: 20220804
  Receipt Date: 20220902
  Transmission Date: 20221027
  Serious: Yes (Death, Hospitalization, Other)
  Sender: FDA-Public Use
  Company Number: CA-PFIZER INC-202201033463

PATIENT
  Age: 59 Year
  Sex: Female

DRUGS (3)
  1. XELJANZ XR [Suspect]
     Active Substance: TOFACITINIB CITRATE
     Dosage: 11 MG, 1X/DAY
     Route: 048
     Dates: start: 20210113
  2. FOLIC ACID [Concomitant]
     Active Substance: FOLIC ACID
     Indication: Rheumatoid arthritis
     Dosage: 5 MG, DAILY
     Dates: end: 20220623
  3. METHOTREXATE SODIUM [Concomitant]
     Active Substance: METHOTREXATE SODIUM
     Indication: Rheumatoid arthritis
     Dosage: 10 MG, WEEKLY
     Dates: end: 20220623

REACTIONS (6)
  - Subarachnoid haemorrhage [Fatal]
  - Cardiac arrest [Fatal]
  - Intraventricular haemorrhage [Unknown]
  - Pneumonia aspiration [Unknown]
  - Stress cardiomyopathy [Unknown]
  - Fall [Unknown]

NARRATIVE: CASE EVENT DATE: 20220602
